FAERS Safety Report 7594097-8 (Version None)
Quarter: 2011Q3

REPORT INFORMATION
  Report Type: 
  Country: None (occurrence: None)
  Receive Date: 20110706
  Receipt Date: 20110628
  Transmission Date: 20111222
  Serious: Yes (Death, Other)
  Sender: FDA-Public Use
  Company Number: CH-NAPPMUNDI-GBR-2011-0008469

PATIENT
  Age: 85 Year
  Sex: Male

DRUGS (2)
  1. MORPHINE SULFATE [Suspect]
     Indication: HEADACHE
     Dosage: 75 MG, DAILY
     Route: 058
  2. MORPHINE SULFATE [Suspect]
     Dosage: 15 MG, DAILY
     Route: 058

REACTIONS (1)
  - INCORRECT DOSE ADMINISTERED [None]
